FAERS Safety Report 8486902-8 (Version None)
Quarter: 2012Q3

REPORT INFORMATION
  Report Type: 
  Country: None (occurrence: None)
  Receive Date: 20120704
  Receipt Date: 20120623
  Transmission Date: 20120928
  Serious: Yes (Other)
  Sender: FDA-Public Use
  Company Number: US-RB-041687-12

PATIENT
  Age: 60 Year
  Sex: Female

DRUGS (2)
  1. ASCORBIC ACID [Concomitant]
     Indication: PRODUCT USED FOR UNKNOWN INDICATION
  2. MUCINEX D [Suspect]
     Indication: PRODUCT USED FOR UNKNOWN INDICATION
     Route: 048
     Dates: start: 20120623

REACTIONS (3)
  - OTORRHOEA [None]
  - EAR HAEMORRHAGE [None]
  - TINNITUS [None]
